FAERS Safety Report 7197323-2 (Version None)
Quarter: 2010Q4

REPORT INFORMATION
  Report Type: 
  Country: None (occurrence: None)
  Receive Date: 20101213
  Receipt Date: 20101206
  Transmission Date: 20110411
  Serious: Yes (Hospitalization)
  Sender: FDA-Public Use
  Company Number: 2010SP063542

PATIENT
  Age: 3 Year
  Sex: Male

DRUGS (2)
  1. TEMODAL [Suspect]
     Indication: NEOPLASM
     Dosage: 95 MG; QD; PO
     Route: 048
     Dates: start: 20101116, end: 20101120
  2. TOPOTECAN [Suspect]
     Indication: NEOPLASM
     Dosage: 0.470 MG; QD; IV
     Route: 042
     Dates: start: 20101116, end: 20101120

REACTIONS (1)
  - FEBRILE BONE MARROW APLASIA [None]
